FAERS Safety Report 20869504 (Version 1)
Quarter: 2022Q2

REPORT INFORMATION
  Report Type: Spontaneous
  Country: GR (occurrence: GR)
  Receive Date: 20220524
  Receipt Date: 20220524
  Transmission Date: 20220720
  Serious: Yes (Death, Hospitalization, Other)
  Sender: FDA-Public Use
  Company Number: GR-ABBVIE-22K-066-4407673-00

PATIENT
  Age: 69 Year
  Sex: Female

DRUGS (10)
  1. VENETOCLAX [Suspect]
     Active Substance: VENETOCLAX
     Indication: Acute myeloid leukaemia
     Route: 048
     Dates: start: 202107
  2. VENETOCLAX [Suspect]
     Active Substance: VENETOCLAX
     Route: 048
  3. VENETOCLAX [Suspect]
     Active Substance: VENETOCLAX
     Route: 048
  4. OLMESARTAN [Concomitant]
     Active Substance: OLMESARTAN
     Indication: Hypertension
  5. LEVOTHYROXINE SODIUM [Concomitant]
     Active Substance: LEVOTHYROXINE SODIUM
     Indication: Hyperthyroidism
  6. BISOPROLOL [Concomitant]
     Active Substance: BISOPROLOL
     Indication: Supraventricular tachycardia
  7. VALACYCLOVIR [Concomitant]
     Active Substance: VALACYCLOVIR HYDROCHLORIDE
     Indication: Prophylaxis
     Dates: start: 2021
  8. FLUCONAZOLE [Concomitant]
     Active Substance: FLUCONAZOLE
     Indication: Product used for unknown indication
  9. LEVOFLOXACIN [Concomitant]
     Active Substance: LEVOFLOXACIN
     Indication: Product used for unknown indication
  10. AZACITIDINE [Concomitant]
     Active Substance: AZACITIDINE
     Indication: Acute myeloid leukaemia

REACTIONS (11)
  - Haemorrhage intracranial [Fatal]
  - Febrile neutropenia [Recovered/Resolved]
  - Soft tissue infection [Unknown]
  - Acute myeloid leukaemia recurrent [Unknown]
  - Septic shock [Unknown]
  - Pancytopenia [Unknown]
  - Thrombocytopenia [Unknown]
  - Pseudomonas aeruginosa meningitis [Unknown]
  - Platelet count decreased [Unknown]
  - Dysplasia [Unknown]
  - Haematotoxicity [Unknown]
